FAERS Safety Report 9057298 (Version 1)
Quarter: 2013Q1

REPORT INFORMATION
  Report Type: Spontaneous
  Country: IT (occurrence: IT)
  Receive Date: 20130131
  Receipt Date: 20130131
  Transmission Date: 20140127
  Serious: Yes (Other)
  Sender: FDA-Public Use
  Company Number: IT-GLAXOSMITHKLINE-B0863488A

PATIENT
  Age: 75 None
  Sex: Female

DRUGS (3)
  1. ZELITREX [Suspect]
     Indication: HERPES ZOSTER
     Dosage: 3G PER DAY
     Route: 048
     Dates: start: 20121214, end: 20121217
  2. DELAPRIDE [Suspect]
     Indication: PRODUCT USED FOR UNKNOWN INDICATION
     Dosage: 32.5MG PER DAY
     Route: 048
     Dates: start: 20121217, end: 20121218
  3. TACHIDOL [Suspect]
     Indication: TOOTHACHE
     Dosage: 1SAC PER DAY
     Route: 065
     Dates: start: 20121217

REACTIONS (1)
  - Loss of consciousness [Recovering/Resolving]
